FAERS Safety Report 8455084-0 (Version None)
Quarter: 2012Q2

REPORT INFORMATION
  Report Type: 
  Country: None (occurrence: None)
  Receive Date: 20120621
  Receipt Date: 20120615
  Transmission Date: 20120825
  Serious: Yes (Hospitalization)
  Sender: FDA-Public Use
  Company Number: US-CELGENEUS-163-21880-12062468

PATIENT
  Sex: Female

DRUGS (11)
  1. REVLIMID [Suspect]
     Dosage: 5 MILLIGRAM
     Route: 048
     Dates: start: 20091112
  2. COUMADIN [Concomitant]
     Route: 065
  3. LISINOPRIL [Concomitant]
     Route: 065
  4. REVLIMID [Suspect]
     Dosage: 5 MILLIGRAM
     Route: 048
     Dates: start: 20081101, end: 20090101
  5. VITAMIN D [Concomitant]
     Route: 065
  6. CARDIZEM [Concomitant]
     Route: 065
  7. LASIX [Concomitant]
     Route: 065
  8. CALCIUM [Concomitant]
     Route: 065
  9. FOLIC ACID [Concomitant]
     Route: 065
  10. METOPROLOL [Concomitant]
     Route: 065
  11. ZOCOR [Concomitant]
     Route: 065

REACTIONS (2)
  - FALL [None]
  - CLAVICLE FRACTURE [None]
